FAERS Safety Report 13281775 (Version 12)
Quarter: 2018Q4

REPORT INFORMATION
  Report Type: Spontaneous
  Country: US (occurrence: US)
  Receive Date: 20170301
  Receipt Date: 20181203
  Transmission Date: 20190204
  Serious: No
  Sender: FDA-Public Use
  Company Number: US-PFIZER INC-2017083968

PATIENT
  Age: 54 Year
  Sex: Female

DRUGS (3)
  1. IBRANCE [Suspect]
     Active Substance: PALBOCICLIB
     Indication: BREAST CANCER STAGE IV
     Dosage: 125 MG, CYCLIC (DAILY FOR 21 DAYS)
     Route: 048
     Dates: start: 20170224
  2. IBRANCE [Suspect]
     Active Substance: PALBOCICLIB
     Dosage: 125 MG, CYCLIC (1 DAYS 1-21)
     Route: 048
     Dates: start: 20170223
  3. IBRANCE [Suspect]
     Active Substance: PALBOCICLIB
     Dosage: 125 MG, DAILY
     Route: 048
     Dates: start: 20170224

REACTIONS (9)
  - Amnesia [Unknown]
  - Bone pain [Unknown]
  - Headache [Unknown]
  - Pain [Not Recovered/Not Resolved]
  - Nausea [Unknown]
  - Fatigue [Not Recovered/Not Resolved]
  - Arthralgia [Unknown]
  - Diarrhoea [Unknown]
  - Alopecia [Not Recovered/Not Resolved]

NARRATIVE: CASE EVENT DATE: 20170308
